FAERS Safety Report 5871970-X (Version None)
Quarter: 2008Q3

REPORT INFORMATION
  Report Type: 
  Country: None (occurrence: None)
  Receive Date: 20080904
  Receipt Date: 20080904
  Transmission Date: 20090109
  Serious: Yes (Hospitalization, Other)
  Sender: FDA-Public Use
  Company Number: None

PATIENT
  Age: 63 Year
  Sex: Male
  Weight: 106.5953 kg

DRUGS (2)
  1. BYETTA [Suspect]
     Indication: BLOOD GLUCOSE
     Dosage: 10 MCG TWICE / DAY SQ
     Route: 058
     Dates: start: 20070110, end: 20070228
  2. BYETTA [Suspect]
     Indication: WEIGHT CONTROL
     Dosage: 10 MCG TWICE / DAY SQ
     Route: 058
     Dates: start: 20070110, end: 20070228

REACTIONS (5)
  - HYPERPHAGIA [None]
  - INAPPROPRIATE SCHEDULE OF DRUG ADMINISTRATION [None]
  - NAUSEA [None]
  - PANCREATIC DISORDER [None]
  - TREATMENT NONCOMPLIANCE [None]
